FAERS Safety Report 12937675 (Version 1)
Quarter: 2016Q4

REPORT INFORMATION
  Report Type: Spontaneous
  Country: US (occurrence: US)
  Receive Date: 20161114
  Receipt Date: 20161114
  Transmission Date: 20170207
  Serious: Yes (Other)
  Sender: FDA-Public Use
  Company Number: US-MEDA-2016110022

PATIENT
  Age: 2 Day
  Sex: Male

DRUGS (7)
  1. ALPROSTADIL. [Suspect]
     Active Substance: ALPROSTADIL
     Indication: PATENT DUCTUS ARTERIOSUS
  2. HEPARIN [Suspect]
     Active Substance: HEPARIN SODIUM
  3. SILDENAFIL. [Suspect]
     Active Substance: SILDENAFIL
  4. FENTANYL. [Suspect]
     Active Substance: FENTANYL
  5. AMPICILLIN [Suspect]
     Active Substance: AMPICILLIN
  6. DOPAMINE [Suspect]
     Active Substance: DOPAMINE\DOPAMINE HYDROCHLORIDE
  7. GENTAMICIN. [Suspect]
     Active Substance: GENTAMICIN

REACTIONS (2)
  - Off label use [Unknown]
  - Rash erythematous [Recovered/Resolved]
